FAERS Safety Report 5477718-5 (Version None)
Quarter: 2007Q4

REPORT INFORMATION
  Report Type: 
  Country: None (occurrence: None)
  Receive Date: 20071005
  Receipt Date: 20070925
  Transmission Date: 20080405
  Serious: Yes (Death, Life-Threatening, Hospitalization, Other)
  Sender: FDA-Public Use
  Company Number: FRWYE368625SEP07

PATIENT
  Sex: Female
  Weight: 37 kg

DRUGS (12)
  1. EFFEXOR [Suspect]
     Indication: DEPRESSION
     Dosage: 50 MG 3 TIMES PER DAY AND THEN DOSE REDUCED
     Route: 048
     Dates: start: 20070614, end: 20070820
  2. AMOXICILLIN [Suspect]
     Route: 048
     Dates: start: 20070813, end: 20070817
  3. AUGMENTIN '125' [Suspect]
     Dosage: 1 DOSE 3 TIMES PER DAY, AND THEN 2 TABLETS TOTAL DAILY
     Route: 048
     Dates: start: 20070817, end: 20070821
  4. DIGOXIN [Suspect]
     Route: 048
     Dates: end: 20070817
  5. RISPERDAL [Concomitant]
     Dosage: UNKNOWN
     Dates: end: 20070803
  6. AMLOR [Concomitant]
  7. KALEORID [Concomitant]
     Dosage: 1200 MG TOTAL WEEKLY
  8. KARDEGIC [Concomitant]
  9. XANAX [Concomitant]
     Dosage: 1 MG TOTAL DAILY
  10. LAROXYL [Concomitant]
  11. COLCHICINE [Suspect]
     Indication: HYPERURICAEMIA
     Route: 048
     Dates: start: 20070803, end: 20070817
  12. LASIX [Suspect]
     Route: 048

REACTIONS (17)
  - ANTITHROMBIN III DECREASED [None]
  - BLOOD LACTATE DEHYDROGENASE INCREASED [None]
  - C-REACTIVE PROTEIN INCREASED [None]
  - CARDIOACTIVE DRUG LEVEL INCREASED [None]
  - COAGULATION FACTOR V LEVEL DECREASED [None]
  - CYTOLYTIC HEPATITIS [None]
  - DYSPNOEA [None]
  - FIBRIN D DIMER INCREASED [None]
  - GAMMA-GLUTAMYLTRANSFERASE INCREASED [None]
  - GENERAL PHYSICAL HEALTH DETERIORATION [None]
  - HYPERURICAEMIA [None]
  - LUNG DISORDER [None]
  - NEUTROPHIL PERCENTAGE INCREASED [None]
  - PROTEIN ALBUMIN RATIO DECREASED [None]
  - PROTHROMBIN TIME RATIO DECREASED [None]
  - RENAL FAILURE ACUTE [None]
  - WHITE BLOOD CELL COUNT INCREASED [None]
